FAERS Safety Report 9833581 (Version 2)
Quarter: 2014Q1

REPORT INFORMATION
  Report Type: Spontaneous
  Country: FR (occurrence: FR)
  Receive Date: 20140122
  Receipt Date: 20140212
  Transmission Date: 20141002
  Serious: Yes (Disabling)
  Sender: FDA-Public Use
  Company Number: ALCN2014FR000521

PATIENT
  Age: 3 Year
  Sex: Female

DRUGS (1)
  1. ATROPINE SULFATE [Suspect]
     Indication: OPHTHALMOLOGICAL EXAMINATION
     Dosage: 1 DF, BID (MORNING AND EVENING)
     Route: 047
     Dates: start: 20131104, end: 20131107

REACTIONS (5)
  - Mydriasis [Unknown]
  - Drug effect prolonged [Unknown]
  - Visual impairment [Unknown]
  - Photophobia [Unknown]
  - Incorrect dose administered [Unknown]
